FAERS Safety Report 5112612-0 (Version None)
Quarter: 2006Q3

REPORT INFORMATION
  Report Type: 
  Country: None (occurrence: None)
  Receive Date: 20060918
  Receipt Date: 20060918
  Transmission Date: 20061208
  Serious: No
  Sender: FDA-Public Use
  Company Number: None

PATIENT
  Age: 43 Year
  Sex: Male

DRUGS (2)
  1. TELITHROMYCIN [Suspect]
     Dates: start: 20060106, end: 20060110
  2. AUGMENTIN [Suspect]
     Dates: start: 20051228, end: 20060106

REACTIONS (8)
  - AUTOIMMUNE HEPATITIS [None]
  - BACK PAIN [None]
  - BILIARY TRACT DISORDER [None]
  - HEPATIC TRAUMA [None]
  - INFLUENZA LIKE ILLNESS [None]
  - INJURY [None]
  - PAIN [None]
  - VISION BLURRED [None]
